FAERS Safety Report 9414358 (Version 1)
Quarter: 2013Q3

REPORT INFORMATION
  Report Type: Spontaneous
  Country: TR (occurrence: TR)
  Receive Date: 20130723
  Receipt Date: 20130723
  Transmission Date: 20140515
  Serious: Yes (Hospitalization, Other)
  Sender: FDA-Public Use
  Company Number: TR-ASTELLAS-2013EU005951

PATIENT
  Age: 54 Year
  Sex: Male

DRUGS (5)
  1. TACROLIMUS SYSTEMIC [Suspect]
     Indication: IMMUNOSUPPRESSION
     Dosage: UNK
     Route: 065
  2. METHYLPREDNISOLONE [Concomitant]
     Indication: RENAL TRANSPLANT
     Dosage: UNK
     Route: 065
  3. ATG-FRESENIUS [Concomitant]
     Indication: RENAL TRANSPLANT
     Dosage: 2 MG/KG, UNKNOWN/D
     Route: 065
  4. MYCOPHENOLATE MOFETIL [Concomitant]
     Indication: IMMUNOSUPPRESSION
     Dosage: 1000 MG, BID
     Route: 065
  5. PREDNISONE [Concomitant]
     Indication: IMMUNOSUPPRESSION
     Dosage: 10 MG, UNKNOWN/D
     Route: 065

REACTIONS (8)
  - Cytomegalovirus infection [Recovered/Resolved]
  - Bronchopulmonary aspergillosis [Recovered/Resolved]
  - Pleural effusion [Recovered/Resolved]
  - Pneumothorax [Recovered/Resolved]
  - Enterobacter pneumonia [Recovered/Resolved]
  - Urinary tract infection enterococcal [Recovered/Resolved]
  - Deep vein thrombosis [Recovered/Resolved]
  - Transurethral prostatectomy [Unknown]
